FAERS Safety Report 5167935-6 (Version None)
Quarter: 2006Q4

REPORT INFORMATION
  Report Type: 
  Country: None (occurrence: None)
  Receive Date: 20061208
  Receipt Date: 20051024
  Transmission Date: 20070319
  Serious: No
  Sender: FDA-Public Use
  Company Number: US-GLAXOSMITHKLINE-A0579407A

PATIENT
  Age: 47 Year
  Sex: Female

DRUGS (2)
  1. AVANDAMET [Suspect]
     Dosage: 1MG TWICE PER DAY
     Route: 048
     Dates: start: 20051014
  2. LEVOXYL [Concomitant]

REACTIONS (1)
  - VISION BLURRED [None]
